FAERS Safety Report 7131936-9 (Version None)
Quarter: 2010Q4

REPORT INFORMATION
  Report Type: 
  Country: None (occurrence: None)
  Receive Date: 20101202
  Receipt Date: 20101119
  Transmission Date: 20110411
  Serious: Yes (Other)
  Sender: FDA-Public Use
  Company Number: GB-RANBAXY-2010R1-39791

PATIENT
  Age: 13 Year
  Sex: Female

DRUGS (1)
  1. AMPICILLIN SODIUM/SULBACTAM SODIUM [Suspect]
     Indication: INFECTION
     Dosage: 375 MG, UNK
     Route: 048
     Dates: start: 20101101, end: 20101102

REACTIONS (2)
  - RASH [None]
  - RASH MACULAR [None]
